FAERS Safety Report 20734788 (Version 1)
Quarter: 2022Q2

REPORT INFORMATION
  Report Type: Spontaneous
  Country: US (occurrence: US)
  Receive Date: 20220421
  Receipt Date: 20220421
  Transmission Date: 20220721
  Serious: Yes (Death, Life-Threatening, Hospitalization)
  Sender: FDA-Public Use
  Company Number: US-MYLANLABS-2022M1028149

PATIENT
  Age: 57 Year
  Sex: Female

DRUGS (1)
  1. PREDNISONE [Suspect]
     Active Substance: PREDNISONE
     Indication: Product used for unknown indication
     Dosage: 40 MILLIGRAM
     Route: 065

REACTIONS (10)
  - Shock [Fatal]
  - Cardiac arrest [Fatal]
  - Strongyloidiasis [Unknown]
  - Respiratory distress [Unknown]
  - Respiratory failure [Unknown]
  - Duodenal ulcer [Unknown]
  - Gastric haemorrhage [Unknown]
  - Obstruction gastric [Unknown]
  - Anaemia [Unknown]
  - Duodenitis [Unknown]
